FAERS Safety Report 14141918 (Version 2)
Quarter: 2017Q4

REPORT INFORMATION
  Report Type: Report from Study
  Country: DE (occurrence: DE)
  Receive Date: 20171030
  Receipt Date: 20171108
  Transmission Date: 20180321
  Serious: Yes (Hospitalization)
  Sender: FDA-Public Use
  Company Number: DE-BIOGEN-2017BI00476034

PATIENT
  Age: 49 Year
  Sex: Female

DRUGS (4)
  1. LOSARTAN. [Concomitant]
     Active Substance: LOSARTAN
     Indication: HYPERTENSION
     Dosage: IN THE MORNING; 1-0-0
     Route: 048
  2. VIIGANTOLETTEB [Concomitant]
     Indication: DEPRESSION
     Dosage: IN THE MORNING; 1-0-0
     Route: 048
  3. CITALOPRAM [Concomitant]
     Active Substance: CITALOPRAM HYDROBROMIDE
     Indication: DEPRESSION
     Dosage: IN THE MORNING; 1-0-0
     Route: 048
  4. TYSABRI [Suspect]
     Active Substance: NATALIZUMAB
     Indication: MULTIPLE SCLEROSIS
     Route: 042
     Dates: start: 20130308

REACTIONS (1)
  - Cerebellar stroke [Recovered/Resolved]

NARRATIVE: CASE EVENT DATE: 20160818
